FAERS Safety Report 5731284-5 (Version None)
Quarter: 2008Q2

REPORT INFORMATION
  Report Type: 
  Country: None (occurrence: None)
  Receive Date: 20080505
  Receipt Date: 20080421
  Transmission Date: 20081010
  Serious: Yes (Other)
  Sender: FDA-Public Use
  Company Number: 2008S1006753

PATIENT
  Age: 47 Year
  Sex: Female

DRUGS (2)
  1. TERBINAFINE HYDROCHLORIDE [Suspect]
     Indication: SMOKING CESSATION THERAPY
     Dosage: ORAL
     Route: 048
     Dates: start: 20080325, end: 20080404
  2. CHAMPIX /05703001/ (VARENICLINE) [Suspect]
     Indication: SMOKING CESSATION THERAPY
     Dosage: 250 MG; DAILY, ORAL
     Route: 048
     Dates: start: 20080319, end: 20080404

REACTIONS (2)
  - CHILLS [None]
  - RASH GENERALISED [None]
